FAERS Safety Report 21861536 (Version 1)
Quarter: 2023Q1

REPORT INFORMATION
  Report Type: Spontaneous
  Country: US (occurrence: US)
  Receive Date: 20230113
  Receipt Date: 20230113
  Transmission Date: 20230418
  Serious: No
  Sender: FDA-Public Use
  Company Number: US-PFIZER INC-PV202300006457

PATIENT
  Age: 55 Year
  Sex: Female

DRUGS (15)
  1. FENTANYL CITRATE [Suspect]
     Active Substance: FENTANYL CITRATE
     Dosage: UNK
  2. VFEND [Concomitant]
     Active Substance: VORICONAZOLE
     Dosage: UNK, 2X/DAY (50 MG TABLET TAKE 4 TABLETS TWICE DAILY FOR ONE DAY FOLLOWED BY 3 TABLETS TWICE DAILY)
  3. AUGMENTIN [Concomitant]
     Active Substance: AMOXICILLIN\CLAVULANATE POTASSIUM
     Dosage: 1 DF, 2X/DAY(TAKE 1 TABLET BY MOUTH 2 TIMES A DAY)
     Route: 048
  4. BUDESONIDE\FORMOTEROL\GLYCOPYRRONIUM [Concomitant]
     Active Substance: BUDESONIDE\FORMOTEROL\GLYCOPYRRONIUM
     Dosage: UNK, 2X/DAY ( INHALE 2 PUFFS ORALLY 2 TIMES A DAY RINSE MOUTH AFTER)
     Route: 048
  5. FERROUS SULFATE [Concomitant]
     Active Substance: FERROUS SULFATE
     Dosage: 325 MG, 1X/DAY
     Route: 048
  6. NICOTROL [Concomitant]
     Active Substance: NICOTINE
     Dosage: UNK
     Route: 048
  7. NICODERM CQ [Concomitant]
     Active Substance: NICOTINE
     Dosage: 21 MG, 1X/DAY(APPLY 1 PATCH (21 MG) TO THE SKIN 1 TIME PER DAY)
     Route: 061
  8. COMMIT [Concomitant]
     Active Substance: NICOTINE
     Indication: Smoking cessation therapy
     Dosage: 2 MG, AS NEEDED(1 LOZENGE (2 MG) INTO MOUTH EVERY 4 HOURS AS NEEDED)
     Route: 048
  9. LASIX [Concomitant]
     Active Substance: FUROSEMIDE
     Dosage: 40 MG, 1X/DAY (TAKE 1 TABLET (40 MG) BY MOUTH 1 TIME PER DAY FOR 3 DAYS)
     Route: 048
  10. ALBUTEROL SULFATE [Concomitant]
     Active Substance: ALBUTEROL SULFATE
     Indication: Dyspnoea
     Dosage: UNK, AS NEEDED (INHALE 2 PUFFS BY MOUTH EVERY 4 HOURS AS NEEDED)
     Route: 048
  11. ALBUTEROL SULFATE [Concomitant]
     Active Substance: ALBUTEROL SULFATE
     Indication: Wheezing
  12. ALBUTEROL SULFATE [Concomitant]
     Active Substance: ALBUTEROL SULFATE
     Indication: Cough
  13. CRESTOR [Concomitant]
     Active Substance: ROSUVASTATIN CALCIUM
     Dosage: 5 MG, 1X/DAY (5 MG TABLET TAKE 1 TABLET (5 MG) BY MOUTH 1 TIME PER DAY)
     Route: 048
  14. TOPROL XL [Concomitant]
     Active Substance: METOPROLOL SUCCINATE
     Dosage: 12.5 MG, DAILY (TAKE 1/2 TABLET(12.5 MG) BY MOUTH EVERY DAY)
     Route: 048
  15. MIDOL [ACETYLSALICYLIC ACID] [Concomitant]
     Dosage: UNK, AS NEEDED (TAKE BY MOUTH AS NEEDED)
     Route: 048

REACTIONS (2)
  - Drug hypersensitivity [Unknown]
  - Blood pressure decreased [Unknown]
